FAERS Safety Report 24448314 (Version 3)
Quarter: 2024Q4

REPORT INFORMATION
  Report Type: Report from Study
  Country: BR (occurrence: BR)
  Receive Date: 20241017
  Receipt Date: 20241217
  Transmission Date: 20250114
  Serious: Yes (Hospitalization)
  Sender: NOVARTIS
  Company Number: BR-002147023-NVSC2024BR201452

PATIENT
  Sex: Female

DRUGS (3)
  1. COSENTYX [Suspect]
     Active Substance: SECUKINUMAB
     Indication: Product used for unknown indication
     Dosage: UNK
     Route: 065
  2. COSENTYX [Suspect]
     Active Substance: SECUKINUMAB
     Dosage: UNK UNK, QMO
     Route: 065
     Dates: start: 20240912
  3. COSENTYX [Suspect]
     Active Substance: SECUKINUMAB
     Dosage: UNK UNK, Q2MO (EVERY 60 DAYS)
     Route: 065

REACTIONS (4)
  - Diarrhoea infectious [Unknown]
  - Sinusitis [Unknown]
  - Infection [Recovered/Resolved with Sequelae]
  - Off label use [Unknown]
